FAERS Safety Report 13174504 (Version 2)
Quarter: 2017Q1

REPORT INFORMATION
  Report Type: Report from Study
  Country: US (occurrence: US)
  Receive Date: 20170201
  Receipt Date: 20170321
  Transmission Date: 20170428
  Serious: Yes (Death)
  Sender: FDA-Public Use
  Company Number: US-OTSUKA-2017_002149

PATIENT
  Sex: Male

DRUGS (1)
  1. DEXTROMETHORPHAN/QUINIDINE [Suspect]
     Active Substance: DEXTROMETHORPHAN HYDROBROMIDE\QUINIDINE SULFATE
     Indication: AFFECT LABILITY
     Dosage: UNK
     Route: 065
     Dates: start: 201506

REACTIONS (1)
  - Death [Fatal]

NARRATIVE: CASE EVENT DATE: 2016
